FAERS Safety Report 5445479-1 (Version None)
Quarter: 2007Q3

REPORT INFORMATION
  Report Type: 
  Country: None (occurrence: None)
  Receive Date: 20070906
  Receipt Date: 20070831
  Transmission Date: 20080115
  Serious: Yes (Hospitalization, Other)
  Sender: FDA-Public Use
  Company Number: US-BOEHRINGER INGELHEIM PHARMACEUTICALS, INC.-2007-BP-16691BP

PATIENT
  Sex: Male
  Weight: 73 kg

DRUGS (6)
  1. SPIRIVA [Suspect]
  2. AVODART [Concomitant]
  3. XALATAN [Concomitant]
  4. ADVAIR DISKUS 100/50 [Concomitant]
  5. OXYGEN [Concomitant]
  6. FLOMAX [Concomitant]

REACTIONS (3)
  - DIZZINESS [None]
  - FALL [None]
  - PROSTATE CANCER [None]
